FAERS Safety Report 7360577-3 (Version None)
Quarter: 2011Q1

REPORT INFORMATION
  Report Type: 
  Country: None (occurrence: None)
  Receive Date: 20110318
  Receipt Date: 20110315
  Transmission Date: 20110831
  Serious: Yes (Death, Hospitalization)
  Sender: FDA-Public Use
  Company Number: JP-ELI_LILLY_AND_COMPANY-JP201102006178

PATIENT
  Sex: Female
  Weight: 59.5 kg

DRUGS (10)
  1. LOXONIN [Concomitant]
     Indication: CANCER PAIN
     Dosage: 60 MG, 3/D
     Dates: start: 20110113, end: 20110223
  2. MAGMITT [Concomitant]
     Indication: CONSTIPATION
     Dosage: 250 MG, 3/D
     Dates: start: 20110117, end: 20110223
  3. DUROTEP [Concomitant]
     Indication: CANCER PAIN
     Dosage: 2.1 MG, UNK
     Dates: start: 20110125, end: 20110307
  4. ZYPREXA [Suspect]
     Dosage: 5 MG, DAILY (1/D)
     Route: 048
     Dates: start: 20110209, end: 20110223
  5. GASCON [Concomitant]
     Indication: GASTRITIS
     Dosage: 40 MG, 3/D
     Dates: start: 20110117, end: 20110223
  6. PACLITAXEL [Concomitant]
     Indication: MALIGNANT NEOPLASM OF RENAL PELVIS
     Dosage: 126 MG, UNK
     Dates: start: 20110119, end: 20110202
  7. CARBOPLATIN [Concomitant]
     Indication: MALIGNANT NEOPLASM OF RENAL PELVIS
     Dosage: 162 MG, UNK
     Dates: start: 20110119, end: 20110202
  8. ZYPREXA [Suspect]
     Indication: PROPHYLAXIS OF NAUSEA AND VOMITING
     Dosage: 2.5 MG, DAILY (1/D)
     Route: 048
     Dates: start: 20110207, end: 20110209
  9. OXYCONTIN [Concomitant]
     Indication: CANCER PAIN
     Dosage: 5 MG, 2/D
     Dates: start: 20110113, end: 20110125
  10. PZC [Concomitant]
     Indication: PROPHYLAXIS OF NAUSEA AND VOMITING
     Dosage: 2 MG, 3/D
     Dates: start: 20110117, end: 20110223

REACTIONS (3)
  - CEREBRAL INFARCTION [None]
  - OFF LABEL USE [None]
  - MALIGNANT NEOPLASM OF RENAL PELVIS [None]
